FAERS Safety Report 5319839-3 (Version None)
Quarter: 2007Q2

REPORT INFORMATION
  Report Type: 
  Country: None (occurrence: None)
  Receive Date: 20070509
  Receipt Date: 20070504
  Transmission Date: 20071010
  Serious: Yes (Life-Threatening, Other)
  Sender: FDA-Public Use
  Company Number: PHEH2007US06250

PATIENT
  Age: 53 Year
  Sex: Female

DRUGS (2)
  1. PROTONIX [Concomitant]
     Indication: GASTROOESOPHAGEAL REFLUX DISEASE
  2. ZELNORM [Suspect]
     Indication: ABDOMINAL DISTENSION
     Dosage: 6 MG, BID
     Route: 048
     Dates: start: 20060718, end: 20070331

REACTIONS (6)
  - ABDOMINAL PAIN [None]
  - CARDIAC DISORDER [None]
  - CHEST DISCOMFORT [None]
  - DYSPNOEA [None]
  - MITRAL VALVE PROLAPSE [None]
  - PALPITATIONS [None]
